FAERS Safety Report 7957418-X (Version None)
Quarter: 2011Q4

REPORT INFORMATION
  Report Type: 
  Country: None (occurrence: None)
  Receive Date: 20111205
  Receipt Date: 20111122
  Transmission Date: 20120403
  Serious: Yes (Other)
  Sender: FDA-Public Use
  Company Number: JP-ROCHE-GNE243895

PATIENT
  Sex: Female
  Weight: 50.054 kg

DRUGS (13)
  1. DEPAS [Concomitant]
     Indication: PRODUCT USED FOR UNKNOWN INDICATION
  2. APROMAL TAB [Concomitant]
     Indication: PRODUCT USED FOR UNKNOWN INDICATION
  3. PRAVASTATIN SODIUM [Concomitant]
     Indication: PRODUCT USED FOR UNKNOWN INDICATION
  4. COFFEINE [Concomitant]
     Indication: PRODUCT USED FOR UNKNOWN INDICATION
  5. IBUPROFEN [Concomitant]
     Indication: PRODUCT USED FOR UNKNOWN INDICATION
  6. NORVASC [Concomitant]
     Indication: PRODUCT USED FOR UNKNOWN INDICATION
  7. HALCION [Concomitant]
     Indication: PRODUCT USED FOR UNKNOWN INDICATION
  8. RANIBIZUMAB [Suspect]
     Indication: MACULAR DEGENERATION
     Route: 050
     Dates: start: 20060725
  9. LISINOPRIL [Concomitant]
     Indication: PRODUCT USED FOR UNKNOWN INDICATION
  10. SENNOSIDE [Concomitant]
     Indication: PRODUCT USED FOR UNKNOWN INDICATION
  11. RANIBIZUMAB [Suspect]
     Dosage: 0.2 ML - 0.3 ML, SINGLE
     Route: 050
     Dates: start: 20070621
  12. FAMOTIDINE [Concomitant]
     Indication: PRODUCT USED FOR UNKNOWN INDICATION
  13. LEVOFLOXACIN [Concomitant]
     Indication: PRODUCT USED FOR UNKNOWN INDICATION

REACTIONS (9)
  - CORNEAL OEDEMA [None]
  - EYE PAIN [None]
  - VISUAL ACUITY REDUCED [None]
  - OCULAR HYPERAEMIA [None]
  - OVERDOSE [None]
  - INTRAOCULAR PRESSURE INCREASED [None]
  - ARTHRALGIA [None]
  - OROPHARYNGEAL DISCOMFORT [None]
  - ASTHENOPIA [None]
